FAERS Safety Report 6954710-2 (Version None)
Quarter: 2010Q3

REPORT INFORMATION
  Report Type: 
  Country: None (occurrence: None)
  Receive Date: 20100829
  Receipt Date: 20100820
  Transmission Date: 20110219
  Serious: Yes (Disabling)
  Sender: FDA-Public Use
  Company Number: US-US-EMD SERONO, INC.-7013999

PATIENT
  Sex: Female

DRUGS (2)
  1. REBIF [Suspect]
     Indication: PRODUCT USED FOR UNKNOWN INDICATION
     Route: 058
     Dates: start: 20100804
  2. NAPROXEN [Concomitant]
     Indication: PREMEDICATION
     Dates: start: 20100801

REACTIONS (3)
  - DIZZINESS [None]
  - VISUAL IMPAIRMENT [None]
  - VOMITING [None]
